FAERS Safety Report 23367611 (Version 1)
Quarter: 2024Q1

REPORT INFORMATION
  Report Type: Spontaneous
  Country: US (occurrence: US)
  Receive Date: 20240104
  Receipt Date: 20240104
  Transmission Date: 20240410
  Serious: No
  Sender: FDA-Public Use
  Company Number: US-BIOMARINAP-US-2023-154866

PATIENT

DRUGS (2)
  1. VOXZOGO [Suspect]
     Active Substance: VOSORITIDE
     Indication: Osteochondrodysplasia
     Dosage: 0.25 MILLILITER, QD
     Route: 058
     Dates: start: 20231220
  2. IBUPROFEN [Concomitant]
     Active Substance: IBUPROFEN
     Indication: Pyrexia

REACTIONS (3)
  - Cyanosis [Not Recovered/Not Resolved]
  - Chills [Not Recovered/Not Resolved]
  - Lethargy [Not Recovered/Not Resolved]

NARRATIVE: CASE EVENT DATE: 20231224
